FAERS Safety Report 12313768 (Version 1)
Quarter: 2016Q2

REPORT INFORMATION
  Report Type: Spontaneous
  Country: US (occurrence: US)
  Receive Date: 20160428
  Receipt Date: 20160428
  Transmission Date: 20160815
  Serious: No
  Sender: FDA-Public Use
  Company Number: US-ALKERMES INC.-ALK-2015-000206

PATIENT

DRUGS (1)
  1. VIVITROL [Suspect]
     Active Substance: NALTREXONE
     Indication: ALCOHOLISM
     Dosage: 380 MG, QMO
     Route: 030

REACTIONS (9)
  - Vertigo [Unknown]
  - Headache [Unknown]
  - Dizziness [Unknown]
  - Hunger [Unknown]
  - Injection site pain [Unknown]
  - Nausea [Unknown]
  - Feeling abnormal [Unknown]
  - Injection site reaction [Unknown]
  - Malaise [Unknown]

NARRATIVE: CASE EVENT DATE: 20150521
